FAERS Safety Report 6796821-0 (Version None)
Quarter: 2010Q2

REPORT INFORMATION
  Report Type: 
  Country: None (occurrence: None)
  Receive Date: 20100628
  Receipt Date: 20100628
  Transmission Date: 20101027
  Serious: Yes (Other)
  Sender: FDA-Public Use
  Company Number: None

PATIENT
  Sex: Female
  Weight: 11.7 kg

DRUGS (1)
  1. CONCENTRATED TYLENOL INFANT DROPS [Suspect]
     Indication: PYREXIA
     Dosage: 120 MG EVERY 4 HRS PO OCCASIONAL USE
     Route: 048
     Dates: start: 20081220, end: 20100414

REACTIONS (3)
  - CONVULSION [None]
  - FEBRILE CONVULSION [None]
  - PRODUCT QUALITY ISSUE [None]
